FAERS Safety Report 9289261 (Version 1)
Quarter: 2013Q2

REPORT INFORMATION
  Report Type: Spontaneous
  Country: US (occurrence: US)
  Receive Date: 20130514
  Receipt Date: 20130514
  Transmission Date: 20140414
  Serious: No
  Sender: FDA-Public Use
  Company Number: US-ABBOTT-12P-163-0965094-00

PATIENT
  Sex: Female

DRUGS (1)
  1. PROMETRIUM [Suspect]
     Indication: ATROPHIC VULVOVAGINITIS
     Dosage: AT BEDTIME
     Route: 067
     Dates: start: 201207

REACTIONS (1)
  - Off label use [Unknown]
